FAERS Safety Report 7111755-X (Version None)
Quarter: 2010Q4

REPORT INFORMATION
  Report Type: 
  Country: None (occurrence: None)
  Receive Date: 20101118
  Receipt Date: 20101102
  Transmission Date: 20110411
  Serious: Yes (Hospitalization)
  Sender: FDA-Public Use
  Company Number: DE-AMGEN-QUU440353

PATIENT

DRUGS (16)
  1. ENBREL [Suspect]
     Indication: RHEUMATOID ARTHRITIS
     Dosage: 25 MG, QWK
     Route: 058
     Dates: start: 20100311, end: 20100401
  2. ENBREL [Suspect]
     Dosage: 25 MG, 2 TIMES/WK
     Route: 058
     Dates: start: 20100401, end: 20100101
  3. METFORMIN HCL [Concomitant]
     Dosage: UNK UNK, UNK
  4. METFORMIN HCL [Concomitant]
  5. IBUPROFEN [Concomitant]
     Dosage: 80 MG, PRN
  6. IBUPROFEN [Concomitant]
     Dosage: 800MG AS NEEDED
  7. PREDNISOLONE [Concomitant]
     Dosage: 10 MG, UNK
  8. PREDNISOLONE [Concomitant]
     Dosage: FROM AN UNKN. DATE 4MG PER DAY, THEN REDUCTION TO 2.5MG PER DAY, LATER 10MG, FREQU. UNKN.
  9. GLUCOCORTICOIDS [Concomitant]
  10. ARAVA [Concomitant]
     Indication: RHEUMATOID ARTHRITIS
     Dosage: 20MG PER DAY
     Dates: start: 20090301, end: 20090601
  11. ARAVA [Concomitant]
     Dosage: 10MG PER DAY
     Dates: start: 20090601
  12. PANTOPRAZOLE SODIUM [Concomitant]
  13. SULFASALAZINE [Concomitant]
     Indication: RHEUMATOID ARTHRITIS
     Dates: start: 20090601
  14. CALCIUM [Concomitant]
     Dosage: UNKNOWN
  15. ERGOCALCIFEROL [Concomitant]
     Dosage: UNKNOWN
  16. AMITRIPTYLINE HCL [Concomitant]

REACTIONS (12)
  - BLOOD GLUCOSE ABNORMAL [None]
  - BONE PAIN [None]
  - BRONCHITIS [None]
  - BRONCHOPNEUMONIA [None]
  - BULLOUS LUNG DISEASE [None]
  - CHRONIC OBSTRUCTIVE PULMONARY DISEASE [None]
  - CONDITION AGGRAVATED [None]
  - DIARRHOEA [None]
  - LYMPHADENOPATHY [None]
  - MUSCLE TIGHTNESS [None]
  - RESPIRATORY FAILURE [None]
  - STAPHYLOCOCCAL INFECTION [None]
